FAERS Safety Report 8167170-3 (Version None)
Quarter: 2012Q1

REPORT INFORMATION
  Report Type: 
  Country: None (occurrence: None)
  Receive Date: 20120227
  Receipt Date: 20120213
  Transmission Date: 20120608
  Serious: Yes (Hospitalization)
  Sender: FDA-Public Use
  Company Number: FR-ELI_LILLY_AND_COMPANY-FR201202003469

PATIENT
  Sex: Male

DRUGS (8)
  1. ZOLPIDEM [Concomitant]
     Dosage: 0.5 DF, QD
     Dates: start: 20111226, end: 20111228
  2. ASPIRIN [Concomitant]
     Dosage: 75 MG, QD
  3. PROZAC [Suspect]
     Indication: ANXIETY
     Dosage: 20 MG, QD
     Route: 048
     Dates: start: 20111226, end: 20111228
  4. LEVOTHYROXINE SODIUM [Concomitant]
     Indication: HYPOTHYROIDISM
     Dosage: 1.5 DF, QD
  5. NEXIUM [Concomitant]
     Indication: GASTROOESOPHAGEAL REFLUX DISEASE
     Dosage: 20 MG, QD
  6. CORDARONE [Concomitant]
     Dosage: 0.5 DF, 3/W
  7. BISOPROLOL FUMARATE [Concomitant]
     Indication: CARDIAC FAILURE
     Dosage: 1.25 MG, BID
  8. SPAGULAX [Concomitant]
     Indication: CONSTIPATION
     Dosage: 3 DF, QD

REACTIONS (4)
  - CONFUSIONAL STATE [None]
  - SPEECH DISORDER [None]
  - FALL [None]
  - AGITATION [None]
